FAERS Safety Report 6880294-3 (Version None)
Quarter: 2010Q3

REPORT INFORMATION
  Report Type: 
  Country: None (occurrence: None)
  Receive Date: 20100728
  Receipt Date: 20100721
  Transmission Date: 20110219
  Serious: Yes (Life-Threatening, Hospitalization)
  Sender: FDA-Public Use
  Company Number: IT-SANOFI-AVENTIS-2010SA042989

PATIENT
  Age: 58 Year
  Sex: Male
  Weight: 67 kg

DRUGS (11)
  1. OXALIPLATIN [Suspect]
     Indication: ADENOCARCINOMA PANCREAS
     Route: 041
     Dates: start: 20100618, end: 20100618
  2. GEMCITABINE [Suspect]
     Indication: ADENOCARCINOMA PANCREAS
     Route: 041
     Dates: start: 20100325, end: 20100325
  3. GEMCITABINE [Suspect]
     Route: 041
     Dates: start: 20100609, end: 20100609
  4. GEMCITABINE [Suspect]
     Route: 041
     Dates: start: 20100617, end: 20100617
  5. BLINDED THERAPY [Concomitant]
     Dates: start: 20100325, end: 20100706
  6. LANSOPRAZOLE [Concomitant]
     Indication: PROPHYLAXIS
     Dates: start: 20100325
  7. PARACETAMOL [Concomitant]
     Dates: start: 20100329, end: 20100706
  8. CLISMA FLEET [Concomitant]
     Dates: start: 20100617, end: 20100617
  9. ALL OTHER THERAPEUTIC PRODUCTS [Concomitant]
     Dates: start: 20100706
  10. SOLDESAM [Concomitant]
     Dates: start: 20100706
  11. TACHIDOL [Concomitant]
     Dates: start: 20100706

REACTIONS (1)
  - CHOLANGITIS [None]
